FAERS Safety Report 10684168 (Version 2)
Quarter: 2015Q1

REPORT INFORMATION
  Report Type: Report from Study
  Country: PL (occurrence: PL)
  Receive Date: 20141231
  Receipt Date: 20150126
  Transmission Date: 20150720
  Serious: Yes (Hospitalization)
  Sender: FDA-Public Use
  Company Number: PL-PFIZER INC-2014350395

PATIENT
  Age: 43 Year
  Sex: Female
  Weight: 80 kg

DRUGS (7)
  1. PLACEBO [Suspect]
     Active Substance: UNSPECIFIED INGREDIENT
     Indication: PSORIATIC ARTHROPATHY
     Dosage: 2X/DAY
     Route: 048
     Dates: start: 20140929
  2. OLFEN [Concomitant]
     Active Substance: DICLOFENAC SODIUM
     Indication: SPINAL PAIN
     Dosage: 75 MG, 1X/DAY
     Route: 048
     Dates: start: 20111013
  3. TOFACITINIB CITRATE [Suspect]
     Active Substance: TOFACITINIB CITRATE
     Indication: PSORIATIC ARTHROPATHY
     Dosage: 10 MG, 2X/DAY
     Route: 048
     Dates: start: 201412
  4. METHOTREXATE [Concomitant]
     Active Substance: METHOTREXATE
     Indication: PSORIATIC ARTHROPATHY
     Dosage: 10 MG, 2X/DAY
     Route: 048
     Dates: start: 20131005
  5. PLACEBO [Suspect]
     Active Substance: UNSPECIFIED INGREDIENT
     Indication: PSORIATIC ARTHROPATHY
     Dosage: 40 MG, Q2 WEEKS
     Route: 058
     Dates: start: 20140929
  6. MILURIT [Concomitant]
     Active Substance: ALLOPURINOL
     Indication: BLOOD URIC ACID INCREASED
     Dosage: 100 MG, 1X/DAY
     Route: 048
     Dates: start: 201107
  7. ZARANTA [Concomitant]
     Indication: ATHEROSCLEROSIS PROPHYLAXIS
     Dosage: 10 MG, 1X/DAY
     Route: 048
     Dates: start: 20120606

REACTIONS (1)
  - Abdominal hernia [Recovered/Resolved]

NARRATIVE: CASE EVENT DATE: 20141002
